FAERS Safety Report 6856176-X (Version None)
Quarter: 2010Q3

REPORT INFORMATION
  Report Type: 
  Country: None (occurrence: None)
  Receive Date: 20100719
  Receipt Date: 20100709
  Transmission Date: 20110219
  Serious: Yes (Hospitalization)
  Sender: FDA-Public Use
  Company Number: PHHO2010DE10472

PATIENT
  Sex: Male
  Weight: 50.8 kg

DRUGS (4)
  1. ALISKIREN ALI+TAB [Suspect]
     Indication: ACUTE MYOCARDIAL INFARCTION
     Dosage: 300 MG / DAY
     Route: 048
     Dates: start: 20090309
  2. DIOVAN [Concomitant]
     Indication: MYOCARDIAL INFARCTION
  3. DIOVAN HCT [Concomitant]
     Indication: MYOCARDIAL INFARCTION
  4. METFORMIN [Concomitant]
     Indication: DIABETES MELLITUS

REACTIONS (1)
  - ACUTE CORONARY SYNDROME [None]
